FAERS Safety Report 13544558 (Version 8)
Quarter: 2018Q4

REPORT INFORMATION
  Report Type: Spontaneous
  Country: US (occurrence: US)
  Receive Date: 20170515
  Receipt Date: 20181101
  Transmission Date: 20190204
  Serious: Yes (Congenital Anomaly, Other)
  Sender: FDA-Public Use
  Company Number: PHEH2017US014077

PATIENT
  Sex: Male

DRUGS (2)
  1. ONDANSETRON [Suspect]
     Active Substance: ONDANSETRON
     Indication: FOETAL EXPOSURE DURING PREGNANCY
     Dosage: MOTHER^S DOSE: 4 MG PER 2ML, UNK
     Route: 064
  2. ZOFRAN ODT [Suspect]
     Active Substance: ONDANSETRON HYDROCHLORIDE
     Indication: FOETAL EXPOSURE DURING PREGNANCY
     Dosage: MOTHER^S DOSE: 8 MG, UNK
     Route: 064

REACTIONS (50)
  - Pulmonary valve stenosis congenital [Unknown]
  - Tricuspid valve incompetence [Unknown]
  - Pleural effusion [Unknown]
  - Pulmonary artery stenosis [Unknown]
  - Sinus arrhythmia [Unknown]
  - Atrial septal defect [Unknown]
  - Sinus bradycardia [Unknown]
  - Cardiac murmur [Unknown]
  - Ear infection [Unknown]
  - Eye pain [Unknown]
  - Nasal congestion [Unknown]
  - Pain in extremity [Unknown]
  - Hiccups [Unknown]
  - Fallot^s tetralogy [Unknown]
  - Bicuspid pulmonary valve [Unknown]
  - Pulmonary valve incompetence [Unknown]
  - Mitral valve incompetence [Unknown]
  - Bundle branch block right [Unknown]
  - Pyrexia [Unknown]
  - Diarrhoea [Unknown]
  - Ear pain [Unknown]
  - Right ventricle outflow tract obstruction [Unknown]
  - Pneumothorax [Recovered/Resolved]
  - Insomnia [Unknown]
  - Right ventricular dilatation [Unknown]
  - Foetal exposure during pregnancy [Unknown]
  - Injury [Unknown]
  - Cough [Unknown]
  - Nasopharyngitis [Unknown]
  - Vomiting [Unknown]
  - Pulmonary hypoplasia [Unknown]
  - Heart disease congenital [Unknown]
  - Right ventricular hypertrophy [Unknown]
  - Dacryocystitis [Unknown]
  - Ventricular tachycardia [Recovered/Resolved]
  - Right ventricular enlargement [Unknown]
  - Atelectasis [Unknown]
  - Oedema [Unknown]
  - Lung hyperinflation [Unknown]
  - Eye discharge [Unknown]
  - Patent ductus arteriosus [Unknown]
  - Pulmonary oedema [Unknown]
  - Right atrial dilatation [Unknown]
  - Right atrial enlargement [Unknown]
  - Congenital aortic valve incompetence [Unknown]
  - Left-to-right cardiac shunt [Unknown]
  - Pericardial effusion [Unknown]
  - Muscle hypertrophy [Unknown]
  - Sinus tachycardia [Unknown]
  - Molluscum contagiosum [Unknown]
